FAERS Safety Report 9277165 (Version 18)
Quarter: 2014Q2

REPORT INFORMATION
  Report Type: Report from Study
  Country: CA (occurrence: CA)
  Receive Date: 20130508
  Receipt Date: 20140602
  Transmission Date: 20141212
  Serious: Yes (Other)
  Sender: FDA-Public Use
  Company Number: CA-ROCHE-1220762

PATIENT
  Age: 49 Year
  Sex: Female
  Weight: 65 kg

DRUGS (11)
  1. ACTEMRA [Suspect]
     Indication: RHEUMATOID ARTHRITIS
     Dosage: LAST DOSE: 23/APR/2014
     Route: 042
     Dates: start: 20130214, end: 20140423
  2. ACTEMRA [Suspect]
     Route: 042
     Dates: start: 20130827
  3. CORTISONE [Suspect]
     Indication: PAIN
     Dosage: 2 SHOTS
     Route: 065
     Dates: start: 20130430, end: 20130430
  4. CORTISONE [Suspect]
     Dosage: 2 IN RIGHT HAD INDEX AND MIDDLE FINGER KNUCKLE AND 2 IN LEFT HAD MIDDLE FINGER AND PALM
     Route: 065
  5. RITUXAN [Suspect]
     Indication: RHEUMATOID ARTHRITIS
     Dosage: DAY 1, 15
     Route: 042
     Dates: start: 20140527
  6. IBUPROFEN [Concomitant]
     Indication: RHEUMATOID ARTHRITIS
     Route: 048
  7. TRIDURAL [Concomitant]
     Indication: RHEUMATOID ARTHRITIS
     Route: 048
  8. LEFLUNOMIDE [Concomitant]
     Indication: RHEUMATOID ARTHRITIS
     Route: 048
  9. TRIAMCINOLONE ACETONIDE [Concomitant]
     Route: 030
  10. ACETAMINOPHEN [Concomitant]
     Route: 048
     Dates: start: 20140527
  11. METHYLPREDNISOLONE [Concomitant]
     Route: 042
     Dates: start: 20140527

REACTIONS (20)
  - Blood pressure increased [Not Recovered/Not Resolved]
  - Rheumatoid arthritis [Recovered/Resolved]
  - Tooth extraction [Unknown]
  - Influenza [Recovered/Resolved]
  - Tendon disorder [Not Recovered/Not Resolved]
  - Hypertension [Unknown]
  - Dyslipidaemia [Unknown]
  - Depression [Unknown]
  - Musculoskeletal pain [Not Recovered/Not Resolved]
  - Drug ineffective [Unknown]
  - Blister infected [Recovered/Resolved]
  - Weight decreased [Not Recovered/Not Resolved]
  - Oropharyngeal pain [Not Recovered/Not Resolved]
  - Sinus congestion [Not Recovered/Not Resolved]
  - Cough [Not Recovered/Not Resolved]
  - Flushing [Not Recovered/Not Resolved]
  - Nasopharyngitis [Not Recovered/Not Resolved]
  - Neck pain [Unknown]
  - Drug effect decreased [Unknown]
  - Anxiety [Unknown]
